FAERS Safety Report 11888872 (Version 2)
Quarter: 2016Q1

REPORT INFORMATION
  Report Type: Report from Study
  Country: AU (occurrence: AU)
  Receive Date: 20160105
  Receipt Date: 20160203
  Transmission Date: 20160526
  Serious: Yes (Hospitalization)
  Sender: FDA-Public Use
  Company Number: AU-BIOGEN-2016BI00167499

PATIENT
  Age: 62 Year
  Sex: Male

DRUGS (1)
  1. TYSABRI [Suspect]
     Active Substance: NATALIZUMAB
     Indication: MULTIPLE SCLEROSIS
     Dosage: INFUSED OVER 1 HOUR
     Route: 042
     Dates: start: 20141104, end: 20151125

REACTIONS (5)
  - Fatigue [Unknown]
  - Toxicity to various agents [Recovered/Resolved]
  - Cognitive disorder [Unknown]
  - Multiple sclerosis relapse [Unknown]
  - Mobility decreased [Unknown]

NARRATIVE: CASE EVENT DATE: 201511
